FAERS Safety Report 10400574 (Version 1)
Quarter: 2014Q3

REPORT INFORMATION
  Report Type: Spontaneous
  Country: US (occurrence: US)
  Receive Date: 20140821
  Receipt Date: 20140821
  Transmission Date: 20150326
  Serious: No
  Sender: FDA-Public Use
  Company Number: US-ASTRAZENECA-2013SE67263

PATIENT
  Age: 72 Year
  Sex: Male
  Weight: 90.7 kg

DRUGS (3)
  1. TURDOZA [Concomitant]
     Dosage: 1 PUFF, EVERY MORNING
     Route: 055
     Dates: start: 201307
  2. VENTOLIN [Concomitant]
     Active Substance: ALBUTEROL SULFATE
     Dosage: PRN
  3. SYMBICORT [Suspect]
     Active Substance: BUDESONIDE\FORMOTEROL FUMARATE DIHYDRATE
     Indication: CHRONIC OBSTRUCTIVE PULMONARY DISEASE
     Dosage: 160/4.5 MCG, 2 PUFFS BID
     Route: 055

REACTIONS (4)
  - Incorrect product storage [Unknown]
  - Hypoacusis [Unknown]
  - Drug prescribing error [Unknown]
  - Lung disorder [Unknown]
